FAERS Safety Report 7964471-6 (Version None)
Quarter: 2011Q4

REPORT INFORMATION
  Report Type: 
  Country: None (occurrence: None)
  Receive Date: 20111208
  Receipt Date: 20111128
  Transmission Date: 20120403
  Serious: Yes (Hospitalization, Other)
  Sender: FDA-Public Use
  Company Number: US-BAYER-2011-053056

PATIENT
  Age: 22 Year
  Sex: Female
  Weight: 97.506 kg

DRUGS (5)
  1. YAZ [Suspect]
     Indication: CONTRACEPTION
     Dosage: UNK
     Dates: start: 20081001, end: 20090501
  2. AZITHROMYCIN [Concomitant]
     Dosage: UNK
     Dates: start: 20090101
  3. CEPHALEXIN [Concomitant]
     Dosage: UNK
     Dates: start: 20090101
  4. ASPIRIN [Concomitant]
     Dosage: UNK
     Dates: start: 20090501, end: 20090601
  5. YAZ [Suspect]
     Indication: PREMENSTRUAL SYNDROME

REACTIONS (4)
  - CHOLELITHIASIS [None]
  - MENTAL DISORDER [None]
  - CHOLECYSTITIS ACUTE [None]
  - PAIN [None]
